FAERS Safety Report 25641754 (Version 1)
Quarter: 2025Q3

REPORT INFORMATION
  Report Type: Report from Study
  Country: EU (occurrence: EU)
  Receive Date: 20250804
  Receipt Date: 20250804
  Transmission Date: 20251020
  Serious: Yes (Other)
  Sender: SERVIER
  Company Number: EU-SERVIER-S25011082

PATIENT

DRUGS (4)
  1. VORASIDENIB [Suspect]
     Active Substance: VORASIDENIB
     Indication: Glioma
     Dosage: 40 MG, QD
     Route: 048
  2. VORASIDENIB [Suspect]
     Active Substance: VORASIDENIB
     Dosage: 20 MG, QD
     Route: 048
  3. KEPPRA [Concomitant]
     Active Substance: LEVETIRACETAM
     Indication: Epilepsy
     Route: 065
  4. ESLICARBAZEPINE ACETATE [Concomitant]
     Active Substance: ESLICARBAZEPINE ACETATE
     Indication: Epilepsy
     Route: 065

REACTIONS (1)
  - Toxicity to various agents [Unknown]
